FAERS Safety Report 8848366 (Version 1)
Quarter: 2012Q4

REPORT INFORMATION
  Report Type: 
  Country: US (occurrence: US)
  Receive Date: 20121018
  Receipt Date: 20121018
  Transmission Date: 20130627
  Serious: No
  Sender: FDA-Public Use
  Company Number: US-ASTRAZENECA-2012SE72540

PATIENT
  Age: 51 Year
  Sex: Female
  Weight: 81.6 kg

DRUGS (2)
  1. NEXIUM [Suspect]
     Indication: GASTROOESOPHAGEAL REFLUX DISEASE
     Route: 048
  2. TOPAMAX [Concomitant]
     Indication: HEADACHE

REACTIONS (6)
  - Oesophageal food impaction [Recovered/Resolved]
  - Malaise [Recovered/Resolved]
  - Vomiting [Recovered/Resolved]
  - Headache [Unknown]
  - Intentional drug misuse [Unknown]
  - Drug dose omission [Unknown]
